FAERS Safety Report 7041457-X (Version None)
Quarter: 2010Q4

REPORT INFORMATION
  Report Type: 
  Country: None (occurrence: None)
  Receive Date: 20101013
  Receipt Date: 20101005
  Transmission Date: 20110411
  Serious: Yes (Life-Threatening)
  Sender: FDA-Public Use
  Company Number: FR-ROCHE-731306

PATIENT
  Sex: Female

DRUGS (9)
  1. HERCEPTIN [Suspect]
     Route: 042
     Dates: start: 20060901
  2. FLUOROURACIL [Suspect]
     Dosage: TAKEN FOR 3 WEEKS
     Route: 042
     Dates: start: 20060101
  3. EPIRUBICIN [Suspect]
     Route: 042
     Dates: start: 20060101
  4. CYCLOPHOSPHAMIDE [Suspect]
     Indication: PRODUCT USED FOR UNKNOWN INDICATION
     Route: 042
     Dates: start: 20060101
  5. TAXOTERE [Suspect]
     Indication: PRODUCT USED FOR UNKNOWN INDICATION
     Dosage: 3 CYCLES
     Route: 042
     Dates: start: 20060101
  6. NOLVADEX [Suspect]
     Indication: PRODUCT USED FOR UNKNOWN INDICATION
     Route: 048
     Dates: start: 20060901
  7. LEUPROLIDE ACETATE [Concomitant]
  8. KEPPRA [Concomitant]
  9. RIVOTRIL [Concomitant]

REACTIONS (2)
  - ACUTE MYELOID LEUKAEMIA [None]
  - PANCYTOPENIA [None]
